FAERS Safety Report 9976871 (Version 1)
Quarter: 2014Q1

REPORT INFORMATION
  Report Type: Report from Study
  Country: US (occurrence: US)
  Receive Date: 20140306
  Receipt Date: 20140306
  Transmission Date: 20141002
  Serious: No
  Sender: FDA-Public Use
  Company Number: US-ABBVIE-13P-163-1167681-00

PATIENT
  Age: 52 Year
  Sex: Female

DRUGS (9)
  1. HUMIRA [Suspect]
     Indication: PSORIATIC ARTHROPATHY
     Dates: start: 20131105
  2. EYE DROPS [Concomitant]
     Indication: PSORIATIC ARTHROPATHY
  3. EYE DROPS [Concomitant]
     Indication: INFLAMMATION
  4. EYE DROPS [Concomitant]
     Indication: GLAUCOMA
  5. PROZAC [Concomitant]
     Indication: BIPOLAR I DISORDER
  6. LISINOPRIL [Concomitant]
     Indication: HYPERTENSION
  7. PREDNISONE [Concomitant]
     Indication: PSORIATIC ARTHROPATHY
  8. ALEVE [Concomitant]
     Indication: PAIN
  9. LORTAB [Concomitant]
     Indication: PAIN

REACTIONS (9)
  - Asthenia [Not Recovered/Not Resolved]
  - Drug ineffective [Not Recovered/Not Resolved]
  - Pain in extremity [Not Recovered/Not Resolved]
  - Local swelling [Not Recovered/Not Resolved]
  - Nail bed inflammation [Not Recovered/Not Resolved]
  - Dyspnoea [Recovered/Resolved]
  - Injection site pain [Not Recovered/Not Resolved]
  - Hyperhidrosis [Not Recovered/Not Resolved]
  - Cold sweat [Not Recovered/Not Resolved]
